FAERS Safety Report 13596045 (Version 1)
Quarter: 2017Q2

REPORT INFORMATION
  Report Type: Spontaneous
  Country: US (occurrence: US)
  Receive Date: 20170531
  Receipt Date: 20170531
  Transmission Date: 20170830
  Serious: No
  Sender: FDA-Public Use
  Company Number: US-JNJFOC-20170308925

PATIENT
  Age: 17 Month
  Sex: Male
  Weight: 11.34 kg

DRUGS (1)
  1. INFANTS TYLENOL [Suspect]
     Active Substance: ACETAMINOPHEN
     Indication: TEETHING
     Route: 048
     Dates: start: 20170307

REACTIONS (2)
  - Extra dose administered [Unknown]
  - Accidental overdose [None]

NARRATIVE: CASE EVENT DATE: 20170307
